FAERS Safety Report 6721731-4 (Version None)
Quarter: 2010Q2

REPORT INFORMATION
  Report Type: 
  Country: None (occurrence: None)
  Receive Date: 20100510
  Receipt Date: 20100422
  Transmission Date: 20101027
  Serious: Yes (Other)
  Sender: FDA-Public Use
  Company Number: 2010S1000102

PATIENT
  Age: 24 Year
  Sex: Male
  Weight: 90.7194 kg

DRUGS (13)
  1. PHOSPHOSODA FLAVOR NOT SPECIFIED [Suspect]
     Indication: COLONOSCOPY
     Dosage: PO
     Route: 048
     Dates: start: 20050213
  2. PENTASA [Suspect]
  3. METHOTREXATE [Suspect]
  4. PROTONIX [Suspect]
  5. ENTOCORT EC [Concomitant]
  6. CIPRO /00042702/ [Concomitant]
  7. PROTONIX /01263201/ [Concomitant]
  8. FIBERCON /00567702/ [Concomitant]
  9. MULTI-VITAMINS [Concomitant]
  10. CALCIUM [Concomitant]
  11. REMICADE [Concomitant]
  12. PREDNISONE [Concomitant]
  13. FOLIC ACID [Concomitant]

REACTIONS (7)
  - FOCAL SEGMENTAL GLOMERULOSCLEROSIS [None]
  - NEPHRITIS ALLERGIC [None]
  - NEPHROSCLEROSIS [None]
  - RENAL ARTERIOSCLEROSIS [None]
  - RENAL FAILURE CHRONIC [None]
  - RENAL TUBULAR ATROPHY [None]
  - TUBULOINTERSTITIAL NEPHRITIS [None]
